FAERS Safety Report 17564985 (Version 2)
Quarter: 2020Q1

REPORT INFORMATION
  Report Type: Spontaneous
  Country: US (occurrence: US)
  Receive Date: 20200320
  Receipt Date: 20200320
  Transmission Date: 20200409
  Serious: Yes (Hospitalization)
  Sender: FDA-Public Use
  Company Number: US-SA-2020SA068683

PATIENT
  Age: 46 Year

DRUGS (2)
  1. LEMTRADA [Suspect]
     Active Substance: ALEMTUZUMAB
     Route: 065
  2. LEMTRADA [Suspect]
     Active Substance: ALEMTUZUMAB
     Dosage: UNK
     Route: 065
     Dates: start: 20200226

REACTIONS (5)
  - Mouth haemorrhage [Unknown]
  - Oral mucosal blistering [Unknown]
  - Petechiae [Unknown]
  - Platelet count decreased [Unknown]
  - Ear haemorrhage [Unknown]
